FAERS Safety Report 5318282-0 (Version None)
Quarter: 2007Q2

REPORT INFORMATION
  Report Type: 
  Country: None (occurrence: None)
  Receive Date: 20070507
  Receipt Date: 20070425
  Transmission Date: 20071010
  Serious: Yes (Death)
  Sender: FDA-Public Use
  Company Number: US-ELI_LILLY_AND_COMPANY-US200704004588

PATIENT
  Age: 48 Year
  Sex: Female

DRUGS (8)
  1. CYMBALTA [Suspect]
     Dosage: 60 MG, DAILY (1/D)
  2. FENTANYL [Concomitant]
     Dosage: 100 UG, UNK
     Route: 061
     Dates: start: 20070308
  3. XANAX XR [Concomitant]
     Dosage: 4 MG, DAILY (1/D)
     Route: 048
  4. PAROXETINE [Concomitant]
     Route: 048
  5. BENADRYL [Concomitant]
     Dosage: UNK, UNK
     Route: 048
  6. TOPROL-XL [Concomitant]
     Dosage: 200 MG, DAILY (1/D)
     Route: 048
  7. HYZAAR [Concomitant]
     Dosage: 1 D/F, DAILY (1/D)
     Route: 048
  8. SOMA [Concomitant]
     Dosage: 350 MG, EACH EVENING
     Route: 048

REACTIONS (5)
  - ABDOMINAL PAIN [None]
  - BLOOD ALCOHOL INCREASED [None]
  - DEATH [None]
  - DIARRHOEA [None]
  - HEPATIC STEATOSIS [None]
